FAERS Safety Report 4936356-0 (Version None)
Quarter: 2006Q1

REPORT INFORMATION
  Report Type: 
  Country: None (occurrence: None)
  Receive Date: 20060302
  Receipt Date: 20060213
  Transmission Date: 20060701
  Serious: Yes (Other)
  Sender: FDA-Public Use
  Company Number: US200602002813

PATIENT
  Sex: Female

DRUGS (2)
  1. HUMULIN U [Suspect]
     Indication: DIABETES MELLITUS
  2. HUMULIN L [Suspect]
     Indication: DIABETES MELLITUS

REACTIONS (2)
  - BREAST CANCER [None]
  - NEOPLASM MALIGNANT [None]
